FAERS Safety Report 10188692 (Version 1)
Quarter: 2014Q2

REPORT INFORMATION
  Report Type: Spontaneous
  Country: US (occurrence: US)
  Receive Date: 20140522
  Receipt Date: 20140522
  Transmission Date: 20141212
  Serious: No
  Sender: FDA-Public Use
  Company Number: US-SA-2014SA035630

PATIENT
  Sex: Female

DRUGS (4)
  1. SOLOSTAR [Suspect]
     Indication: DEVICE THERAPY
     Dates: start: 20131017
  2. SOLOSTAR [Suspect]
     Indication: DEVICE THERAPY
     Dates: start: 20131017
  3. LANTUS SOLOSTAR [Suspect]
     Indication: TYPE 2 DIABETES MELLITUS
     Dosage: START DATE: 3+ MONTHS DOSE:29 UNIT(S)
     Route: 058
     Dates: start: 20131017
  4. LANTUS SOLOSTAR [Suspect]
     Indication: TYPE 2 DIABETES MELLITUS
     Dosage: START DATE: 3+ MONTHS DOSE:29 UNIT(S)
     Route: 058
     Dates: start: 20131017

REACTIONS (4)
  - Eye pain [Unknown]
  - Dry eye [Unknown]
  - Eyelid disorder [Unknown]
  - Injection site pain [Unknown]
